FAERS Safety Report 16665783 (Version 1)
Quarter: 2019Q3

REPORT INFORMATION
  Report Type: Spontaneous
  Country: CN (occurrence: CN)
  Receive Date: 20190804
  Receipt Date: 20190804
  Transmission Date: 20191004
  Serious: Yes (Other)
  Sender: FDA-Public Use
  Company Number: CN-BAYER-2019-141278

PATIENT
  Age: 47 Year
  Sex: Male

DRUGS (2)
  1. LIDOCAINE AND CHLORHEXIDINE ACETATE [Concomitant]
     Dosage: UNK
     Route: 061
     Dates: start: 20190726
  2. LORATADINE ORALLY DISINTEGRATING TABLET [Suspect]
     Active Substance: LORATADINE
     Indication: URTICARIA
     Dosage: 1 DF, ONCE
     Route: 048
     Dates: start: 20190726, end: 20190726

REACTIONS (3)
  - Syncope [Recovered/Resolved]
  - Urinary incontinence [None]
  - Dizziness [None]

NARRATIVE: CASE EVENT DATE: 20190726
